FAERS Safety Report 7491326-6 (Version None)
Quarter: 2011Q2

REPORT INFORMATION
  Report Type: 
  Country: None (occurrence: None)
  Receive Date: 20110519
  Receipt Date: 20110516
  Transmission Date: 20111010
  Serious: Yes (Hospitalization, Other)
  Sender: FDA-Public Use
  Company Number: R0016426A

PATIENT
  Age: 68 Year
  Sex: Female
  Weight: 59 kg

DRUGS (2)
  1. VIANI [Suspect]
     Indication: OBSTRUCTIVE AIRWAYS DISORDER
     Route: 055
     Dates: start: 20080101
  2. BLINDED VACCINE [Suspect]
     Indication: PROPHYLAXIS
     Route: 030
     Dates: start: 20101028, end: 20101028

REACTIONS (1)
  - PNEUMONIA [None]
